FAERS Safety Report 4457888-8 (Version None)
Quarter: 2004Q3

REPORT INFORMATION
  Report Type: 
  Country: None (occurrence: None)
  Receive Date: 20040917
  Receipt Date: 20040618
  Transmission Date: 20050211
  Serious: Yes (Other)
  Sender: FDA-Public Use
  Company Number: US-JNJFOC-20040605846

PATIENT
  Age: 72 Year
  Sex: Female
  Weight: 79.3795 kg

DRUGS (2)
  1. TOPAMAX [Suspect]
     Indication: CONVULSION
     Dosage: 200 MG, 2 IN 1 DAY, ORAL
     Route: 048
     Dates: end: 20040329
  2. SYNTHROID [Concomitant]

REACTIONS (2)
  - CONSTIPATION [None]
  - PETIT MAL EPILEPSY [None]
